FAERS Safety Report 13866329 (Version 1)
Quarter: 2017Q3

REPORT INFORMATION
  Report Type: Spontaneous
  Country: US (occurrence: US)
  Receive Date: 20170814
  Receipt Date: 20170814
  Transmission Date: 20171127
  Serious: No
  Sender: FDA-Public Use
  Company Number: US-ROCHE-1889423

PATIENT
  Age: 64 Year
  Sex: Female

DRUGS (1)
  1. ACTEMRA [Suspect]
     Active Substance: TOCILIZUMAB
     Indication: PRODUCT USED FOR UNKNOWN INDICATION
     Route: 058
     Dates: start: 20170101, end: 20170131

REACTIONS (5)
  - Rash [Unknown]
  - Skin exfoliation [Unknown]
  - Stomatitis [Unknown]
  - Tongue discolouration [Unknown]
  - Blister [Unknown]

NARRATIVE: CASE EVENT DATE: 20170116
